FAERS Safety Report 13929226 (Version 1)
Quarter: 2017Q3

REPORT INFORMATION
  Report Type: Spontaneous
  Country: US (occurrence: US)
  Receive Date: 20170901
  Receipt Date: 20170901
  Transmission Date: 20171127
  Serious: Yes (Hospitalization)
  Sender: FDA-Public Use
  Company Number: None

PATIENT
  Age: 68 Year
  Sex: Female

DRUGS (5)
  1. PENICILLIN [Concomitant]
     Active Substance: PENICILLIN
  2. CAPRILIC ACID [Concomitant]
  3. ANTIVIRAL [Concomitant]
  4. VITAMINS [Concomitant]
     Active Substance: VITAMINS
  5. EFFEXOR XR [Suspect]
     Active Substance: VENLAFAXINE HYDROCHLORIDE
     Indication: POST-TRAUMATIC STRESS DISORDER
     Dosage: ?          QUANTITY:1 CAPSULE(S);?
     Route: 048
     Dates: start: 20021101, end: 20160317

REACTIONS (2)
  - Fall [None]
  - Gait disturbance [None]

NARRATIVE: CASE EVENT DATE: 20160317
